FAERS Safety Report 9354769 (Version 3)
Quarter: 2013Q3

REPORT INFORMATION
  Report Type: Spontaneous
  Country: US (occurrence: US)
  Receive Date: 20130619
  Receipt Date: 20130806
  Transmission Date: 20140515
  Serious: Yes (Death, Other)
  Sender: FDA-Public Use
  Company Number: US-009507513-1306USA007757

PATIENT
  Sex: 0

DRUGS (2)
  1. REBETOL [Suspect]
     Indication: HEPATITIS C
     Dosage: SCHEDULES OF PEGA2A (WEEKLY)-RBV (BID) AT WKS 0,4,8 WERE 90MCG-7MG/KG,135MCG-10MG/KG, 180MCG-14MG/KG
     Route: 048
  2. PEGINTERFERON ALFA-2A [Suspect]
     Indication: HEPATITIS C
     Dosage: 2 DF, QW, AT 0,4,8 WERE 90MCG-7MG/KG, 135MCG-10MG/KG, 180MCG-14MG/KG

REACTIONS (1)
  - Hepatic failure [Fatal]
